FAERS Safety Report 15001111 (Version 1)
Quarter: 2018Q2

REPORT INFORMATION
  Report Type: Spontaneous
  Country: US (occurrence: US)
  Receive Date: 20180523
  Receipt Date: 20180523
  Transmission Date: 20180711
  Serious: Yes (Hospitalization, Disabling)
  Sender: FDA-Public Use
  Company Number: None

PATIENT
  Sex: Female

DRUGS (14)
  1. DIGOX [Concomitant]
     Active Substance: DIGOXIN
  2. CLOPIDOGREL [Concomitant]
     Active Substance: CLOPIDOGREL BISULFATE
  3. SEVELAMER [Suspect]
     Active Substance: SEVELAMER
     Indication: PHOSPHORUS METABOLISM DISORDER
     Route: 048
     Dates: start: 20180213
  4. GLIPIZID [Concomitant]
  5. PANTOPRAZOLE [Concomitant]
     Active Substance: PANTOPRAZOLE
  6. VITAMIN B12 [Concomitant]
     Active Substance: CYANOCOBALAMIN
  7. LYRICA [Concomitant]
     Active Substance: PREGABALIN
  8. ASPIRIN. [Concomitant]
     Active Substance: ASPIRIN
  9. MIDODRINE [Concomitant]
     Active Substance: MIDODRINE
  10. OMEPRAZOLE. [Concomitant]
     Active Substance: OMEPRAZOLE
  11. TRAMADOL. [Concomitant]
     Active Substance: TRAMADOL
  12. VITAMIN D [Concomitant]
     Active Substance: CHOLECALCIFEROL
  13. ANASTROZOLE. [Concomitant]
     Active Substance: ANASTROZOLE
  14. ATORVASTATIN [Concomitant]
     Active Substance: ATORVASTATIN

REACTIONS (1)
  - Hospitalisation [None]
